FAERS Safety Report 23885042 (Version 2)
Quarter: 2024Q2

REPORT INFORMATION
  Report Type: Report from Study
  Country: IT (occurrence: IT)
  Receive Date: 20240522
  Receipt Date: 20240525
  Transmission Date: 20240716
  Serious: Yes (Hospitalization, Other)
  Sender: FDA-Public Use
  Company Number: IT-ABBVIE-5769012

PATIENT
  Age: 55 Year

DRUGS (2)
  1. CARBIDOPA\LEVODOPA [Suspect]
     Active Substance: CARBIDOPA\LEVODOPA
     Indication: Parkinson^s disease
     Dosage: DAILY DOSE: 660 MG; PUMP SETTING MD: 2ML+3ML CR: 2ML/H (14H) ED: 1,5ML
     Route: 050
     Dates: start: 20231121
  2. CARBIDOPA\LEVODOPA [Suspect]
     Active Substance: CARBIDOPA\LEVODOPA

REACTIONS (5)
  - Loss of consciousness [Not Recovered/Not Resolved]
  - Road traffic accident [Unknown]
  - Upper limb fracture [Not Recovered/Not Resolved]
  - Head injury [Not Recovered/Not Resolved]
  - Hospitalisation [Unknown]

NARRATIVE: CASE EVENT DATE: 20240101
